FAERS Safety Report 21335695 (Version 1)
Quarter: 2022Q3

REPORT INFORMATION
  Report Type: Spontaneous
  Country: CN (occurrence: None)
  Receive Date: 20220915
  Receipt Date: 20220915
  Transmission Date: 20221026
  Serious: Yes (Other)
  Sender: FDA-Public Use
  Company Number: CN-ROCHE-3175241

PATIENT
  Age: 54 Year
  Sex: Female

DRUGS (12)
  1. TRASTUZUMAB [Suspect]
     Active Substance: TRASTUZUMAB
     Indication: Breast cancer
     Dosage: 17-AUG-2021,07-SEP-2021, 8 MG/KG FOR THE FIRST TIME, THE REMAINING 6 MG/KG?INTRAVENOUS DRIP EVERY TH
     Route: 041
  2. TRASTUZUMAB [Suspect]
     Active Substance: TRASTUZUMAB
     Dosage: 29-SEP-2021,20-OCT-2021,11-NOV-2021,02-DEC-2021, 8 MG/KG FOR THE FIRST TIME, THE?REMAINING 6 MG/KG I
     Route: 041
  3. TRASTUZUMAB [Suspect]
     Active Substance: TRASTUZUMAB
     Dosage: 8 MG/KG FOR THE FIRST TIME, THE REMAINING 6 MG/KG INTRAVENOUS DRIP EVERY THREE WEEKS
     Route: 041
     Dates: start: 20211223
  4. PERTUZUMAB [Suspect]
     Active Substance: PERTUZUMAB
     Indication: Breast cancer
     Dosage: 17-AUG-2021,07-SEP-2021, 840 MG FOR THE FIRST TIME, THE REMAINING 420 MG INTRAVENOUS DRIP EVERY 21 D
     Route: 041
  5. PERTUZUMAB [Suspect]
     Active Substance: PERTUZUMAB
     Dosage: 29-SEP-2021,20-OCT-2021,11-NOV-2021,02-DEC-2021, 840 MG FOR THE FIRST TIME, THE REMAINING 420 MG INT
     Route: 041
  6. PERTUZUMAB [Suspect]
     Active Substance: PERTUZUMAB
     Dosage: 840 MG FOR THE FIRST TIME, THE REMAINING 420 MG INTRAVENOUS DRIP EVERY 21 DAYS
     Route: 041
     Dates: start: 20211223
  7. ADO-TRASTUZUMAB EMTANSINE [Suspect]
     Active Substance: ADO-TRASTUZUMAB EMTANSINE
     Indication: Breast cancer
     Dosage: 08-APR-2022,05-MAY-2022
     Route: 041
  8. EXEMESTANE [Concomitant]
     Active Substance: EXEMESTANE
     Route: 048
     Dates: start: 20220408
  9. PACLITAXEL [Concomitant]
     Active Substance: PACLITAXEL
     Indication: Breast cancer
     Dosage: 18-AUG-2021,08-SEP-2021
     Route: 041
  10. PACLITAXEL [Concomitant]
     Active Substance: PACLITAXEL
     Dosage: 29-SEP-2021,20-OCT-2021,11-NOV-2021,02-DEC-2021
  11. CARBOPLATIN [Concomitant]
     Active Substance: CARBOPLATIN
     Indication: Breast cancer
     Dosage: 18-AUG-2021,08-SEP-2021
     Route: 041
  12. CARBOPLATIN [Concomitant]
     Active Substance: CARBOPLATIN
     Dosage: 29-SEP-2021,20-OCT-2021,11-NOV-2021,02-DEC-2021

REACTIONS (1)
  - Platelet count decreased [Unknown]

NARRATIVE: CASE EVENT DATE: 20220413
